FAERS Safety Report 15203619 (Version 1)
Quarter: 2018Q3

REPORT INFORMATION
  Report Type: Spontaneous
  Country: ES (occurrence: ES)
  Receive Date: 20180726
  Receipt Date: 20180726
  Transmission Date: 20181010
  Serious: Yes (Death, Other)
  Sender: FDA-Public Use
  Company Number: ES-TEVA-2018-ES-930469

PATIENT
  Sex: Male

DRUGS (2)
  1. XOFIGO [Suspect]
     Active Substance: RADIUM RA-223 DICHLORIDE
     Indication: HORMONE-REFRACTORY PROSTATE CANCER
     Dosage: 6 CYCLES
     Route: 042
     Dates: start: 201510
  2. DOCETAXEL. [Suspect]
     Active Substance: DOCETAXEL
     Route: 065
     Dates: start: 201606

REACTIONS (7)
  - Prostatic specific antigen increased [Unknown]
  - Bone pain [Unknown]
  - Metastases to bone [Unknown]
  - Death [Fatal]
  - Metastases to lymph nodes [Unknown]
  - Femur fracture [Unknown]
  - Major depression [Unknown]

NARRATIVE: CASE EVENT DATE: 201510
